FAERS Safety Report 7424422-X (Version None)
Quarter: 2011Q2

REPORT INFORMATION
  Report Type: 
  Country: None (occurrence: None)
  Receive Date: 20110419
  Receipt Date: 20100721
  Transmission Date: 20111010
  Serious: No
  Sender: FDA-Public Use
  Company Number: US-ABBOTT-10P-163-0659352-00

PATIENT
  Sex: Female
  Weight: 65.83 kg

DRUGS (12)
  1. DIOVAN [Concomitant]
     Indication: HYPERTENSION
  2. FOLIC ACID [Concomitant]
     Indication: VITAMIN SUPPLEMENTATION
  3. FUROSEMIDE [Concomitant]
     Indication: JOINT SWELLING
  4. CINNAMON EXTRACT TABLETS [Concomitant]
     Indication: MEDICAL DIET
  5. ZEMPLAR [Suspect]
     Indication: HYPERPARATHYROIDISM
     Dates: start: 20070101
  6. AMLODIPINE [Concomitant]
     Indication: HYPERTENSION
  7. COLCHICINE [Concomitant]
     Indication: GOUT
  8. ASCORBIC ACID [Concomitant]
     Indication: VITAMIN SUPPLEMENTATION
  9. KLOR-CON [Concomitant]
     Indication: ELECTROLYTE SUBSTITUTION THERAPY
  10. SIMVASTATIN [Concomitant]
     Indication: BLOOD CHOLESTEROL INCREASED
  11. METOPROLOL [Concomitant]
     Indication: HYPERTENSION
  12. GLUCOSAMINE W/CHONDROITIN [Concomitant]
     Indication: MEDICAL DIET

REACTIONS (2)
  - BLOOD PARATHYROID HORMONE INCREASED [None]
  - ARTHRALGIA [None]
